FAERS Safety Report 21057091 (Version 1)
Quarter: 2022Q3

REPORT INFORMATION
  Report Type: Other
  Country: JP (occurrence: JP)
  Receive Date: 20220708
  Receipt Date: 20220708
  Transmission Date: 20221027
  Serious: Yes (Hospitalization, Other)
  Sender: FDA-Public Use
  Company Number: JP-CHUGAI-A2021015213ROCHE

PATIENT
  Age: 62 Year
  Sex: Male
  Weight: 72.6 kg

DRUGS (5)
  1. ATEZOLIZUMAB [Suspect]
     Active Substance: ATEZOLIZUMAB
     Indication: Lung adenocarcinoma
     Dosage: SINGLE
     Route: 041
     Dates: start: 20210315, end: 20210315
  2. CARBOPLATIN [Suspect]
     Active Substance: CARBOPLATIN
     Indication: Lung adenocarcinoma
     Dosage: 540 MILLIGRAM, SINGLE
     Route: 041
     Dates: start: 20210315, end: 20210315
  3. PACLITAXEL [Suspect]
     Active Substance: PACLITAXEL
     Indication: Lung adenocarcinoma
     Dosage: DOSE INTERVAL UNCERTAINTY
     Route: 041
     Dates: start: 20210315, end: 20210322
  4. OXYCONTIN [Suspect]
     Active Substance: OXYCODONE HYDROCHLORIDE
     Indication: Lung adenocarcinoma
     Route: 065
  5. LOXOPROFEN SODIUM [Suspect]
     Active Substance: LOXOPROFEN SODIUM
     Indication: Pyrexia
     Route: 065

REACTIONS (8)
  - Polymyalgia rheumatica [Recovering/Resolving]
  - Pyrexia [Recovered/Resolved]
  - Hyperkalaemia [Recovering/Resolving]
  - Nausea [Recovering/Resolving]
  - Decreased appetite [Recovering/Resolving]
  - Constipation [Recovering/Resolving]
  - Epistaxis [Recovered/Resolved]
  - Blood creatinine increased [Recovering/Resolving]

NARRATIVE: CASE EVENT DATE: 20210317
